FAERS Safety Report 7586570-3 (Version None)
Quarter: 2011Q3

REPORT INFORMATION
  Report Type: 
  Country: None (occurrence: None)
  Receive Date: 20110701
  Receipt Date: 20080723
  Transmission Date: 20111222
  Serious: Yes (Death, Other)
  Sender: FDA-Public Use
  Company Number: US-BAYER-200813818NA

PATIENT
  Age: 56 Year
  Sex: Male
  Weight: 102.95 kg

DRUGS (35)
  1. MAGNEVIST [Suspect]
     Indication: ANGIOGRAM
     Dosage: UNK UNK, ONCE
     Dates: start: 20031021, end: 20031021
  2. PROHANCE [Suspect]
     Indication: NUCLEAR MAGNETIC RESONANCE IMAGING BRAIN
  3. EPOGEN [Concomitant]
     Dates: start: 20050912
  4. METOPROLOL TARTRATE [Concomitant]
  5. MAGNEVIST [Suspect]
     Dosage: 35 ML, ONCE
     Dates: start: 20050817, end: 20050817
  6. OMNISCAN [Suspect]
     Indication: VENOGRAM
     Dosage: 36 ML, ONCE
     Dates: start: 20020924, end: 20020924
  7. ZEMPLAR [Concomitant]
     Dates: start: 20050912
  8. LOPRESSOR [Concomitant]
     Dates: start: 20060127
  9. RENAGEL [Concomitant]
     Dosage: TAKE BEFORE MEALS
     Dates: start: 20060127
  10. THALIDOMIDE [Concomitant]
     Dates: end: 20060127
  11. FERRLECIT [Concomitant]
     Dates: start: 20050912
  12. MULTI-VITAMINS [Concomitant]
     Dosage: 1 TAB
  13. NITROGLYCERIN [Concomitant]
     Indication: CHEST PAIN
     Dates: start: 20060127
  14. NEPHROCAPS [Concomitant]
  15. TEMAZEPAM [Concomitant]
  16. PROHANCE [Suspect]
     Indication: VENOGRAM
     Dosage: 18 ML, ONCE
     Dates: start: 20011206, end: 20011206
  17. LISINOPRIL [Concomitant]
     Dates: start: 20050912
  18. EFFEXOR [Concomitant]
     Dates: start: 20060127
  19. EFFEXOR [Concomitant]
     Dates: start: 20060127
  20. RENAGEL [Concomitant]
     Dosage: 800 MG:  4 WITH MEALS
     Dates: start: 20050912, end: 20060127
  21. RESTORIL [Concomitant]
     Dates: start: 20050912
  22. ASPIRIN [Concomitant]
     Dates: start: 20060127
  23. ZELNORM [Concomitant]
  24. GADOLINIUM IN UNSPECIFIED DRUG [Concomitant]
     Indication: NUCLEAR MAGNETIC RESONANCE IMAGING
     Dosage: 20 ML, ONCE
     Route: 042
     Dates: start: 20020930, end: 20020930
  25. PLAVIX [Concomitant]
     Dates: start: 20060127
  26. CELLCEPT [Concomitant]
  27. OMNISCAN [Suspect]
     Indication: NUCLEAR MAGNETIC RESONANCE IMAGING
     Dosage: 15 ML, UNK
     Dates: start: 20020924, end: 20020924
  28. GADOLINIUM IN UNSPECIFIED DRUG [Concomitant]
     Indication: VENOGRAM RENAL
     Dosage: 8 ML, ONCE
     Dates: start: 20020925, end: 20020925
  29. EFFEXOR [Concomitant]
     Dates: start: 20050912, end: 20060127
  30. PHOSLO [Concomitant]
     Dosage: 667 MG:  2 WITH MEALS, 1 WITH SNACKS
     Dates: start: 20050912
  31. SERTRALINE HYDROCHLORIDE [Concomitant]
  32. SIMVASTATIN [Concomitant]
  33. ASPIRIN [Concomitant]
     Dates: start: 20050912, end: 20060127
  34. ZOCOR [Concomitant]
     Dates: start: 20060127
  35. PREDNISONE [Concomitant]
     Dosage: ^2.5 DAILY^

REACTIONS (8)
  - PAIN [None]
  - SKIN EXFOLIATION [None]
  - DRY SKIN [None]
  - INJURY [None]
  - GAIT DISTURBANCE [None]
  - NEPHROGENIC SYSTEMIC FIBROSIS [None]
  - JOINT STIFFNESS [None]
  - FIBROSIS TENDINOUS [None]
